FAERS Safety Report 18243437 (Version 1)
Quarter: 2020Q3

REPORT INFORMATION
  Report Type: Report from Study
  Country: NL (occurrence: NL)
  Receive Date: 20200908
  Receipt Date: 20200908
  Transmission Date: 20201103
  Serious: Yes (Other)
  Sender: FDA-Public Use
  Company Number: NL-B.I. PHARMACEUTICALS,INC./RIDGEFIELD-2020-BI-045890

PATIENT
  Age: 77 Year
  Sex: Male

DRUGS (1)
  1. PLACEBO [Suspect]
     Active Substance: UNSPECIFIED INGREDIENT
     Indication: CARDIAC FAILURE
     Route: 048

REACTIONS (1)
  - Circulatory collapse [Recovered/Resolved]

NARRATIVE: CASE EVENT DATE: 20181031
